FAERS Safety Report 17718928 (Version 1)
Quarter: 2020Q2

REPORT INFORMATION
  Report Type: Spontaneous
  Country: AU (occurrence: AU)
  Receive Date: 20200428
  Receipt Date: 20200428
  Transmission Date: 20200714
  Serious: Yes (Hospitalization, Other)
  Sender: FDA-Public Use
  Company Number: AU-SHIRE-AU202014224

PATIENT

DRUGS (1)
  1. VYVANSE [Suspect]
     Active Substance: LISDEXAMFETAMINE DIMESYLATE
     Indication: PRODUCT USED FOR UNKNOWN INDICATION
     Dosage: 30 MILLIGRAM, UNKNOWN
     Route: 048
     Dates: start: 201911

REACTIONS (4)
  - Seizure [Recovered/Resolved]
  - Hypotonia [Recovered/Resolved]
  - Amphetamines positive [Recovered/Resolved]
  - Product use issue [Unknown]
